FAERS Safety Report 4789039-4 (Version None)
Quarter: 2005Q4

REPORT INFORMATION
  Report Type: 
  Country: None (occurrence: None)
  Receive Date: 20051003
  Receipt Date: 20050705
  Transmission Date: 20060501
  Serious: No
  Sender: FDA-Public Use
  Company Number: SU-2005-003744

PATIENT
  Age: 47 Year
  Sex: Male
  Weight: 145.151 kg

DRUGS (9)
  1. BENICAR HCT [Suspect]
     Indication: HYPERTENSION
     Dosage: 40.25 MG QD PO
     Route: 048
     Dates: start: 20050301
  2. NOVOLOG [Concomitant]
  3. LANTUS [Concomitant]
  4. ACTOS [Concomitant]
  5. LABETALOL [Concomitant]
  6. PLAVIX [Concomitant]
  7. PROTONIX [Concomitant]
  8. VYTORIN [Concomitant]
  9. ASPIRIN [Concomitant]

REACTIONS (2)
  - DIABETES MELLITUS INADEQUATE CONTROL [None]
  - HYPERGLYCAEMIA [None]
